FAERS Safety Report 25323368 (Version 2)
Quarter: 2025Q2

REPORT INFORMATION
  Report Type: Report from Study
  Country: US (occurrence: US)
  Receive Date: 20250516
  Receipt Date: 20250520
  Transmission Date: 20250717
  Serious: Yes (Other)
  Sender: UCB
  Company Number: US-UCBSA-2025008514

PATIENT
  Age: 5 Year
  Sex: Female
  Weight: 27.4 kg

DRUGS (2)
  1. FINTEPLA [Suspect]
     Active Substance: FENFLURAMINE
     Indication: Lennox-Gastaut syndrome
     Dosage: 4.4 MILLILITER, 2X/DAY (BID)
     Route: 048
     Dates: start: 20220821
  2. FINTEPLA [Suspect]
     Active Substance: FENFLURAMINE
     Indication: Seizure

REACTIONS (5)
  - Tricuspid valve incompetence [Not Recovered/Not Resolved]
  - Sinusitis [Not Recovered/Not Resolved]
  - Respiratory tract congestion [Not Recovered/Not Resolved]
  - Fatigue [Not Recovered/Not Resolved]
  - Hypersomnia [Not Recovered/Not Resolved]

NARRATIVE: CASE EVENT DATE: 20250220
